FAERS Safety Report 13184302 (Version 4)
Quarter: 2017Q1

REPORT INFORMATION
  Report Type: Report from Study
  Country: GB (occurrence: GB)
  Receive Date: 20170203
  Receipt Date: 20170313
  Transmission Date: 20170428
  Serious: Yes (Hospitalization)
  Sender: FDA-Public Use
  Company Number: GB-ROCHE-1888006

PATIENT
  Age: 61 Year
  Sex: Female
  Weight: 83 kg

DRUGS (7)
  1. BUTRANS [Concomitant]
     Active Substance: BUPRENORPHINE
     Route: 048
     Dates: start: 20170101
  2. ATEZOLIZUMAB [Suspect]
     Active Substance: ATEZOLIZUMAB
     Indication: COLORECTAL ADENOCARCINOMA
     Dosage: THE DATE OF THE MOST RECENT DOSE OF ATEZOLIZUMAB 840 MG PRIOR TO SAE ONSET WAS TAKEN ON 09/JAN/2017
     Route: 042
     Dates: start: 20170109
  3. FRAGMIN [Concomitant]
     Active Substance: DALTEPARIN SODIUM
     Route: 048
  4. PIZOTIFEN [Concomitant]
     Active Substance: PIZOTYLINE
     Route: 065
     Dates: start: 2009
  5. CHLORPHENAMINE [Concomitant]
     Active Substance: CHLORPHENIRAMINE MALEATE
     Indication: RASH
     Route: 048
     Dates: start: 20170119
  6. COBIMETINIB [Suspect]
     Active Substance: COBIMETINIB
     Indication: COLORECTAL ADENOCARCINOMA
     Dosage: THE DATE OF THE MOST RECENT DOSE OF COBIMETINIB 60 MG PRIOR TO SAE ONSET WAS TAKEN ON 22/JAN/2017
     Route: 048
     Dates: start: 20170109
  7. BETAMETHASONE. [Concomitant]
     Active Substance: BETAMETHASONE
     Indication: RASH
     Route: 061
     Dates: start: 20170119

REACTIONS (2)
  - Nausea [Recovered/Resolved]
  - Mucosal inflammation [Recovered/Resolved]

NARRATIVE: CASE EVENT DATE: 20170121
